FAERS Safety Report 6847175-2 (Version None)
Quarter: 2010Q3

REPORT INFORMATION
  Report Type: 
  Country: None (occurrence: None)
  Receive Date: 20100716
  Receipt Date: 20100707
  Transmission Date: 20110219
  Serious: No
  Sender: FDA-Public Use
  Company Number: US-BIOGENIDEC-2010BI023165

PATIENT
  Age: 66 Year
  Sex: Female

DRUGS (2)
  1. AVONEX [Suspect]
     Indication: MULTIPLE SCLEROSIS
     Route: 030
     Dates: start: 20001003, end: 20070101
  2. AVONEX [Suspect]
     Route: 030
     Dates: start: 20100101

REACTIONS (4)
  - ABASIA [None]
  - APHASIA [None]
  - FALL [None]
  - HYPOAESTHESIA [None]
